FAERS Safety Report 9120821 (Version 1)
Quarter: 2013Q1

REPORT INFORMATION
  Report Type: Spontaneous
  Country: BR (occurrence: BR)
  Receive Date: 20130226
  Receipt Date: 20130226
  Transmission Date: 20140127
  Serious: Yes (Other)
  Sender: FDA-Public Use
  Company Number: BR-009507513-1302BRA010648

PATIENT
  Sex: Male
  Weight: 73 kg

DRUGS (4)
  1. RIBAVIRIN [Suspect]
     Indication: HEPATITIS C
     Dosage: UNK, UNKNOWN
     Route: 048
  2. RIBAVIRIN [Suspect]
     Dosage: UNK, UNKNOWN
     Route: 048
  3. INTERFERON (UNSPECIFIED) [Concomitant]
     Indication: HEPATITIS C
     Dosage: UNK, UNKNOWN
  4. INTERFERON (UNSPECIFIED) [Concomitant]
     Dosage: UNK, UNKNOWN

REACTIONS (3)
  - Cholecystectomy [Unknown]
  - Drug ineffective [Unknown]
  - Drug ineffective [Unknown]
